FAERS Safety Report 11550331 (Version 1)
Quarter: 2015Q3

REPORT INFORMATION
  Report Type: Report from Study
  Country: US (occurrence: US)
  Receive Date: 20150924
  Receipt Date: 20150924
  Transmission Date: 20151125
  Serious: Yes (Hospitalization)
  Sender: FDA-Public Use
  Company Number: US-AMGEN-USASL2015098704

PATIENT

DRUGS (1)
  1. PROCRIT [Suspect]
     Active Substance: ERYTHROPOIETIN
     Indication: PRODUCT USED FOR UNKNOWN INDICATION
     Dosage: 10000 UNITS/ML, UNK
     Route: 065

REACTIONS (3)
  - Unevaluable event [Unknown]
  - Drug dose omission [Unknown]
  - Incorrect product storage [Unknown]

NARRATIVE: CASE EVENT DATE: 20150920
